FAERS Safety Report 8707547 (Version 2)
Quarter: 2013Q4

REPORT INFORMATION
  Report Type: Spontaneous
  Country: US (occurrence: US)
  Receive Date: 20120805
  Receipt Date: 20131101
  Transmission Date: 20140711
  Serious: No
  Sender: FDA-Public Use
  Company Number: US-009507513-1207USA010591

PATIENT
  Sex: Male

DRUGS (5)
  1. ZOCOR [Suspect]
     Route: 048
  2. VIAGRA [Interacting]
  3. BYSTOLIC [Interacting]
  4. PLAVAS [Interacting]
  5. VALSARTAN [Interacting]

REACTIONS (2)
  - Drug interaction [Unknown]
  - Drug effect decreased [Unknown]
